FAERS Safety Report 7088255-9 (Version None)
Quarter: 2010Q4

REPORT INFORMATION
  Report Type: 
  Country: None (occurrence: None)
  Receive Date: 20101028
  Receipt Date: 20101013
  Transmission Date: 20110411
  Serious: Yes (Other)
  Sender: FDA-Public Use
  Company Number: 017003

PATIENT
  Sex: Female
  Weight: 44.4 kg

DRUGS (10)
  1. LACOSAMIDE [Suspect]
     Indication: CONVULSION
     Dosage: (50 MG BID) (50 MG BID) (50 MG DURING DAY) (150 MG, 50 MG AT DAY AND 100 MG AT NITE) (200 MG, 100 MG
     Route: 048
     Dates: start: 20100804, end: 20100808
  2. LACOSAMIDE [Suspect]
     Indication: CONVULSION
     Dosage: (50 MG BID) (50 MG BID) (50 MG DURING DAY) (150 MG, 50 MG AT DAY AND 100 MG AT NITE) (200 MG, 100 MG
     Route: 048
     Dates: start: 20100809, end: 20100809
  3. LACOSAMIDE [Suspect]
     Indication: CONVULSION
     Dosage: (50 MG BID) (50 MG BID) (50 MG DURING DAY) (150 MG, 50 MG AT DAY AND 100 MG AT NITE) (200 MG, 100 MG
     Route: 048
     Dates: start: 20100821, end: 20100915
  4. LACOSAMIDE [Suspect]
     Indication: CONVULSION
     Dosage: (50 MG BID) (50 MG BID) (50 MG DURING DAY) (150 MG, 50 MG AT DAY AND 100 MG AT NITE) (200 MG, 100 MG
     Route: 048
     Dates: start: 20100930, end: 20101001
  5. LACOSAMIDE [Suspect]
     Indication: CONVULSION
     Dosage: (50 MG BID) (50 MG BID) (50 MG DURING DAY) (150 MG, 50 MG AT DAY AND 100 MG AT NITE) (200 MG, 100 MG
     Route: 048
     Dates: start: 20100803
  6. LACOSAMIDE [Suspect]
     Indication: CONVULSION
     Dosage: (50 MG BID) (50 MG BID) (50 MG DURING DAY) (150 MG, 50 MG AT DAY AND 100 MG AT NITE) (200 MG, 100 MG
     Route: 048
     Dates: start: 20100810
  7. LACOSAMIDE [Suspect]
     Indication: CONVULSION
     Dosage: (50 MG BID) (50 MG BID) (50 MG DURING DAY) (150 MG, 50 MG AT DAY AND 100 MG AT NITE) (200 MG, 100 MG
     Route: 048
     Dates: start: 20100816
  8. PRIMIDONE [Concomitant]
  9. CALCIUM [Concomitant]
  10. MULTIVITAMIN /01229101/ [Concomitant]

REACTIONS (34)
  - BREAST INFLAMMATION [None]
  - CONFUSIONAL STATE [None]
  - CONVULSION [None]
  - COUGH [None]
  - DIARRHOEA [None]
  - DIPLOPIA [None]
  - DISCOMFORT [None]
  - DIZZINESS [None]
  - DRY MOUTH [None]
  - DYSPHAGIA [None]
  - EAR DISCOMFORT [None]
  - EAR PAIN [None]
  - GINGIVAL BLEEDING [None]
  - GINGIVAL PAIN [None]
  - HYPERHIDROSIS [None]
  - HYPERSENSITIVITY [None]
  - LOSS OF CONSCIOUSNESS [None]
  - LYMPHADENOPATHY [None]
  - MEMORY IMPAIRMENT [None]
  - MIDDLE INSOMNIA [None]
  - MOANING [None]
  - MUSCLE SPASMS [None]
  - NIPPLE PAIN [None]
  - PALPITATIONS [None]
  - PARAESTHESIA ORAL [None]
  - POLLAKIURIA [None]
  - RESTLESSNESS [None]
  - SENSATION OF HEAVINESS [None]
  - SLEEP DISORDER [None]
  - TREMOR [None]
  - URTICARIA [None]
  - VISUAL FIELD DEFECT [None]
  - VITREOUS FLOATERS [None]
  - WHITE BLOOD CELLS URINE POSITIVE [None]
